FAERS Safety Report 9408877 (Version 1)
Quarter: 2013Q3

REPORT INFORMATION
  Report Type: Spontaneous
  Country: US (occurrence: US)
  Receive Date: 20130719
  Receipt Date: 20130719
  Transmission Date: 20140515
  Serious: No
  Sender: FDA-Public Use
  Company Number: US-009507513-1307IND007687

PATIENT
  Age: 45 Year
  Sex: Female

DRUGS (1)
  1. SAPHRIS [Suspect]
     Indication: BIPOLAR DISORDER

REACTIONS (8)
  - Impaired driving ability [Unknown]
  - Headache [Unknown]
  - Lethargy [Unknown]
  - Thirst [Unknown]
  - Stupor [Unknown]
  - Rash [Unknown]
  - Somnolence [Unknown]
  - Fatigue [Unknown]
